FAERS Safety Report 7385710-9 (Version None)
Quarter: 2011Q1

REPORT INFORMATION
  Report Type: 
  Country: None (occurrence: None)
  Receive Date: 20110301
  Receipt Date: 20100930
  Transmission Date: 20110831
  Serious: No
  Sender: FDA-Public Use
  Company Number: 2211100-US-JNJFO C-20091103164

PATIENT
  Age: 75 Year
  Sex: Female
  Weight: 79.3795 kg

DRUGS (12)
  1. MOTRIN IB [Suspect]
     Indication: RHEUMATOID ARTHRITIS
     Dosage: 600 MG, 4 IN 1 DAY, ORAL
     Route: 048
     Dates: start: 20090915
  2. ASPIRIN [Concomitant]
  3. EXTRA STRENGTH TYLENOL [Concomitant]
  4. DONNATAL [Concomitant]
  5. MSM (METHYLSULFONYLMETHANE) [Concomitant]
  6. VITAMIN (VITAMINS NOS) [Concomitant]
  7. MULTIVITAMIN [Concomitant]
  8. VITAMIN AD (VITAMIN AD) [Concomitant]
  9. TAGAMET HB [Concomitant]
  10. MOVE FREE (GLUCOSAMINE W/CHONDROITIN SULFATE) [Concomitant]
  11. VITAMIN B12 [Concomitant]
  12. ASCORBIC ACID [Concomitant]

REACTIONS (2)
  - PRODUCT QUALITY ISSUE [None]
  - INCORRECT DOSE ADMINISTERED [None]
